FAERS Safety Report 15787923 (Version 1)
Quarter: 2019Q1

REPORT INFORMATION
  Report Type: Report from Study
  Country: None (occurrence: AR)
  Receive Date: 20190104
  Receipt Date: 20190104
  Transmission Date: 20190417
  Serious: Yes (Other)
  Sender: FDA-Public Use
  Company Number: AR-ABBVIE-19K-007-2612301-00

PATIENT
  Sex: Female

DRUGS (1)
  1. HUMIRA [Suspect]
     Active Substance: ADALIMUMAB
     Indication: PSORIATIC ARTHROPATHY
     Route: 058
     Dates: start: 20170830

REACTIONS (6)
  - Osteoarthritis [Unknown]
  - Ligament sprain [Unknown]
  - Joint effusion [Unknown]
  - Meniscus injury [Unknown]
  - Finger deformity [Unknown]
  - Overweight [Unknown]
